FAERS Safety Report 22285854 (Version 1)
Quarter: 2023Q2

REPORT INFORMATION
  Report Type: Report from Study
  Country: US (occurrence: US)
  Receive Date: 20230504
  Receipt Date: 20230504
  Transmission Date: 20230722
  Serious: Yes (Death)
  Sender: FDA-Public Use
  Company Number: US-ABBVIE-4752099

PATIENT
  Age: 76 Year
  Sex: Female
  Weight: 68 kg

DRUGS (13)
  1. CREON [Suspect]
     Active Substance: PANCRELIPASE AMYLASE\PANCRELIPASE LIPASE\PANCRELIPASE PROTEASE
     Indication: Pancreatitis
     Dosage: FREQUENCY TEXT: 2 CAPS WITH MEAL AND 1 WITH SNACK?STRENGTH: 36000 UNIT
     Route: 048
     Dates: start: 2016
  2. PANTOPRAZOLE [Concomitant]
     Active Substance: PANTOPRAZOLE
     Indication: Product used for unknown indication
  3. FERROUS SULFATE [Concomitant]
     Active Substance: FERROUS SULFATE
     Indication: Blood iron decreased
  4. VITAMIN C [Concomitant]
     Active Substance: ASCORBIC ACID
     Indication: Iron metabolism disorder
  5. ESCITALOPRAM [Concomitant]
     Active Substance: ESCITALOPRAM OXALATE
     Indication: Anxiety
  6. CETIRIZINE HCL [Concomitant]
     Active Substance: CETIRIZINE HYDROCHLORIDE
     Indication: Multiple allergies
  7. TAMSULOSIN [Concomitant]
     Active Substance: TAMSULOSIN
     Indication: Product used for unknown indication
  8. ASPIRIN [Concomitant]
     Active Substance: ASPIRIN
     Indication: Cardiovascular event prophylaxis
     Dosage: 81 MILLIGRAM
  9. INSULIN GLARGINE [Concomitant]
     Active Substance: INSULIN GLARGINE
     Indication: Type 2 diabetes mellitus
  10. SUCRALFATE [Concomitant]
     Active Substance: SUCRALFATE
     Indication: Oesophageal haemorrhage
  11. MEMANTINE [Concomitant]
     Active Substance: MEMANTINE
     Indication: Dementia
  12. CHONDROITIN SULFATE (BOVINE)\GLUCOSAMINE HYDROCHLORIDE [Concomitant]
     Active Substance: CHONDROITIN SULFATE (BOVINE)\GLUCOSAMINE HYDROCHLORIDE
     Indication: Musculoskeletal disorder
  13. VITAMIN D3 [Concomitant]
     Active Substance: CHOLECALCIFEROL
     Indication: Prophylaxis

REACTIONS (2)
  - Respiratory failure [Fatal]
  - Pain [Fatal]

NARRATIVE: CASE EVENT DATE: 20230429
